FAERS Safety Report 5155323-8 (Version None)
Quarter: 2006Q4

REPORT INFORMATION
  Report Type: 
  Country: None (occurrence: None)
  Receive Date: 20061121
  Receipt Date: 20061113
  Transmission Date: 20070319
  Serious: Yes (Other)
  Sender: FDA-Public Use
  Company Number: 2006PK02362

PATIENT
  Age: 24169 Day
  Sex: Female
  Weight: 60 kg

DRUGS (1)
  1. NEXIUM [Suspect]
     Indication: REFLUX OESOPHAGITIS
     Route: 048
     Dates: start: 20061031, end: 20061112

REACTIONS (6)
  - BLOOD GLUCOSE INCREASED [None]
  - ERYTHEMA [None]
  - GENERALISED ERYTHEMA [None]
  - LIP SWELLING [None]
  - PRURITUS [None]
  - SWELLING FACE [None]
